FAERS Safety Report 9210933 (Version 1)
Quarter: 2013Q2

REPORT INFORMATION
  Report Type: Spontaneous
  Country: IN (occurrence: IN)
  Receive Date: 20130404
  Receipt Date: 20130404
  Transmission Date: 20140414
  Serious: Yes (Death, Hospitalization)
  Sender: FDA-Public Use
  Company Number: IN-ELI_LILLY_AND_COMPANY-IN201304000547

PATIENT
  Age: 65 Year
  Sex: Male

DRUGS (2)
  1. ALIMTA [Suspect]
     Indication: LUNG ADENOCARCINOMA
     Dosage: 800 MG, UNKNOWN
     Route: 042
  2. CARBOPLATIN [Concomitant]
     Indication: LUNG ADENOCARCINOMA

REACTIONS (3)
  - Cardiac arrest [Fatal]
  - Febrile neutropenia [Unknown]
  - General physical health deterioration [Unknown]
